FAERS Safety Report 17051497 (Version 1)
Quarter: 2019Q4

REPORT INFORMATION
  Report Type: Spontaneous
  Country: US (occurrence: US)
  Receive Date: 20191120
  Receipt Date: 20191120
  Transmission Date: 20200122
  Serious: No
  Sender: FDA-Public Use
  Company Number: US-BEH-2019109615

PATIENT
  Sex: Female

DRUGS (16)
  1. IPRATROPIUM BROMIDE. [Concomitant]
     Active Substance: IPRATROPIUM BROMIDE
  2. QVAR [Concomitant]
     Active Substance: BECLOMETHASONE DIPROPIONATE
  3. SINGULAIR [Concomitant]
     Active Substance: MONTELUKAST SODIUM
  4. BENADRYL [DIPHENHYDRAMINE;PARACETAMOL;PHENYLPROPANOLAMINE HYDROCHLORID [Concomitant]
     Indication: PREMEDICATION
  5. AUGMENTINE [AMOXICILLIN;CLAVULANIC ACID] [Concomitant]
     Active Substance: AMOXICILLIN\CLAVULANIC ACID
  6. ACIDOPHILUS PROBIOTIC [Concomitant]
     Active Substance: LACTOBACILLUS ACIDOPHILUS
  7. SPIRIVA [Concomitant]
     Active Substance: TIOTROPIUM BROMIDE MONOHYDRATE
  8. HIZENTRA [Suspect]
     Active Substance: HUMAN IMMUNOGLOBULIN G
     Indication: ESSENTIAL HYPERTENSION
     Dosage: 16 GRAM, QW
     Route: 058
  9. VITAMIN D [VITAMIN D NOS] [Concomitant]
     Active Substance: VITAMIN D NOS
  10. ALBUTEROL SULFATE. [Concomitant]
     Active Substance: ALBUTEROL SULFATE
  11. METFORMIN HCL [Concomitant]
     Active Substance: METFORMIN HYDROCHLORIDE
  12. XANAX [Concomitant]
     Active Substance: ALPRAZOLAM
  13. TYLENOL [Concomitant]
     Active Substance: ACETAMINOPHEN
     Indication: PREMEDICATION
  14. LASIX [Concomitant]
     Active Substance: FUROSEMIDE
  15. POTASSIUM [Concomitant]
     Active Substance: POTASSIUM
  16. METOPROLOL SUCCINATE. [Concomitant]
     Active Substance: METOPROLOL SUCCINATE

REACTIONS (9)
  - Depressed mood [Recovered/Resolved]
  - Fatigue [Recovered/Resolved]
  - Somnolence [Recovered/Resolved]
  - Bronchitis chronic [Recovered/Resolved]
  - Sinus disorder [Recovered/Resolved]
  - No adverse event [Unknown]
  - Product use in unapproved indication [Unknown]
  - Dizziness [Recovered/Resolved]
  - Vision blurred [Recovered/Resolved]

NARRATIVE: CASE EVENT DATE: 2019
